FAERS Safety Report 10211016 (Version 2)
Quarter: 2014Q2

REPORT INFORMATION
  Report Type: Report from Study
  Country: DE (occurrence: DE)
  Receive Date: 20140602
  Receipt Date: 20140602
  Transmission Date: 20141212
  Serious: Yes (Hospitalization)
  Sender: FDA-Public Use
  Company Number: DE-JNJFOC-PRIUSA2000012156

PATIENT
  Age: 32 Year
  Sex: Male
  Weight: 71 kg

DRUGS (3)
  1. REMICADE [Suspect]
     Indication: ANKYLOSING SPONDYLITIS
     Route: 041
     Dates: start: 20000908, end: 20000908
  2. REMICADE [Suspect]
     Indication: ANKYLOSING SPONDYLITIS
     Route: 041
     Dates: start: 20001027, end: 20001027
  3. REMICADE [Suspect]
     Indication: ANKYLOSING SPONDYLITIS
     Route: 041
     Dates: start: 20000828, end: 20000828

REACTIONS (5)
  - Disseminated tuberculosis [Recovered/Resolved]
  - Hepatic enzyme increased [Recovering/Resolving]
  - Fungal infection [Unknown]
  - Pleural effusion [Unknown]
  - Granuloma [Unknown]
